FAERS Safety Report 5831792-2 (Version None)
Quarter: 2008Q3

REPORT INFORMATION
  Report Type: 
  Country: None (occurrence: None)
  Receive Date: 20080804
  Receipt Date: 20080725
  Transmission Date: 20090109
  Serious: Yes (Death, Other)
  Sender: FDA-Public Use
  Company Number: GB-RANBAXY-2008RR-16723

PATIENT

DRUGS (2)
  1. VERAPAMIL TABLETS BP 40MG [Suspect]
     Dosage: 120 MG, QD
     Route: 048
  2. DONEPEZIL HCL [Suspect]
     Route: 048

REACTIONS (2)
  - ATRIOVENTRICULAR BLOCK [None]
  - DEATH [None]
